FAERS Safety Report 7705024-4 (Version None)
Quarter: 2011Q3

REPORT INFORMATION
  Report Type: 
  Country: None (occurrence: None)
  Receive Date: 20110823
  Receipt Date: 20110818
  Transmission Date: 20111222
  Serious: Yes (Death, Other)
  Sender: FDA-Public Use
  Company Number: US-PFIZER INC-2008086206

PATIENT
  Sex: Male

DRUGS (11)
  1. NEURONTIN [Suspect]
     Dosage: 400 MG, 4X/DAY
     Dates: start: 20020719, end: 20020817
  2. NEURONTIN [Suspect]
     Dosage: 300 MG, 4X/DAY
     Dates: start: 20010724, end: 20020105
  3. NEURONTIN [Suspect]
     Dosage: 400 MG, 3X/DAY
     Dates: start: 20020313, end: 20020504
  4. NEURONTIN [Suspect]
     Indication: BIPOLAR DISORDER
     Dosage: 100 MG, 5 TIMES A DAY
     Dates: start: 20001223
  5. NEURONTIN [Suspect]
     Dosage: 100 MG, 3X/DAY
     Dates: start: 20020226, end: 20020401
  6. AMBIEN [Concomitant]
     Dosage: 10 MG, 1X/DAY
     Dates: start: 20001223, end: 20020815
  7. CYPROHEPTADINE [Concomitant]
     Dosage: 4 MG, 2X/DAY
     Dates: start: 20020815
  8. NEURONTIN [Suspect]
     Dosage: 400 MG, 5 TIMES A DAY
     Dates: start: 20020601
  9. NEURONTIN [Suspect]
     Dosage: 300 MG, 2X/DAY
     Dates: start: 20010206, end: 20010504
  10. NEURONTIN [Suspect]
     Dosage: 300 MG, 3X/DAY
     Dates: start: 20010605, end: 20010626
  11. CLONAZEPAM [Concomitant]
     Dosage: 2 MG, 3X/DAY
     Dates: start: 20020313, end: 20020815

REACTIONS (6)
  - ANXIETY [None]
  - COMPLETED SUICIDE [None]
  - BIPOLAR DISORDER [None]
  - DRUG INEFFECTIVE FOR UNAPPROVED INDICATION [None]
  - PSYCHOTIC DISORDER [None]
  - INTENTIONAL OVERDOSE [None]
